FAERS Safety Report 7970410 (Version 3)
Quarter: 2014Q1

REPORT INFORMATION
  Report Type: Spontaneous
  Country: US (occurrence: US)
  Receive Date: 20110602
  Receipt Date: 20140122
  Transmission Date: 20141002
  Serious: No
  Sender: FDA-Public Use
  Company Number: US-BIOGENIDEC-2011BI019847

PATIENT
  Age: 51 Year
  Sex: Female

DRUGS (4)
  1. TYSABRI [Suspect]
     Indication: MULTIPLE SCLEROSIS
     Route: 042
     Dates: start: 20110517
  2. CLARITIN [Concomitant]
     Indication: PREMEDICATION
     Dates: start: 2011
  3. TYLENOL [Concomitant]
     Indication: PREMEDICATION
     Dates: start: 2011
  4. COPAXONE [Concomitant]
     Indication: MULTIPLE SCLEROSIS

REACTIONS (17)
  - Hypersomnia [Recovered/Resolved]
  - Sinus disorder [Unknown]
  - Disorientation [Unknown]
  - Serum sickness [Recovered/Resolved]
  - Hyporesponsive to stimuli [Unknown]
  - Proteinuria [Unknown]
  - Pain in extremity [Unknown]
  - Pyrexia [Unknown]
  - Headache [Recovered/Resolved]
  - Malaise [Unknown]
  - Arthralgia [Unknown]
  - Asthenia [Unknown]
  - Rash pruritic [Recovered/Resolved]
  - Pain [Recovered/Resolved]
  - Fatigue [Recovered/Resolved]
  - Nasopharyngitis [Not Recovered/Not Resolved]
  - Hypersensitivity [Not Recovered/Not Resolved]
